FAERS Safety Report 10035663 (Version 2)
Quarter: 2014Q2

REPORT INFORMATION
  Report Type: Spontaneous
  Country: HU (occurrence: None)
  Receive Date: 20140321
  Receipt Date: 20140429
  Transmission Date: 20141212
  Serious: Yes (Other)
  Sender: FDA-Public Use
  Company Number: 2014-04935

PATIENT
  Sex: Female

DRUGS (1)
  1. ULIPRISTAL ACETATE [Suspect]
     Indication: UTERINE LEIOMYOMA
     Dates: start: 20131015, end: 20140106

REACTIONS (1)
  - Uterine leiomyoma [None]
